FAERS Safety Report 5441977-5 (Version None)
Quarter: 2007Q3

REPORT INFORMATION
  Report Type: 
  Country: None (occurrence: None)
  Receive Date: 20070904
  Receipt Date: 20070828
  Transmission Date: 20080115
  Serious: No
  Sender: FDA-Public Use
  Company Number: B0484724A

PATIENT
  Age: 74 Year
  Sex: Male

DRUGS (3)
  1. PAXIL [Suspect]
     Indication: DEPRESSION
     Dosage: 10MG PER DAY
     Route: 048
     Dates: start: 20070820
  2. PREDONINE [Concomitant]
  3. LOXONIN [Concomitant]
     Route: 048

REACTIONS (2)
  - NAUSEA [None]
  - STOMACH DISCOMFORT [None]
